FAERS Safety Report 19240180 (Version 10)
Quarter: 2023Q2

REPORT INFORMATION
  Report Type: Spontaneous
  Country: CA (occurrence: CA)
  Receive Date: 20210510
  Receipt Date: 20230531
  Transmission Date: 20230721
  Serious: Yes (Other)
  Sender: FDA-Public Use
  Company Number: CA-MLMSERVICE-20210421-2849552-1

PATIENT
  Age: 47 Year
  Sex: Female

DRUGS (47)
  1. LORAZEPAM [Interacting]
     Active Substance: LORAZEPAM
     Indication: Affective disorder
     Dosage: 1 TO 2 MG PO 4 TIMES DAILY AS NEEDED
     Route: 048
  2. LORAZEPAM [Interacting]
     Active Substance: LORAZEPAM
     Indication: Drug withdrawal syndrome
     Dosage: ON DAY 3 OF HOSPITALIZATION
     Route: 065
  3. LORAZEPAM [Interacting]
     Active Substance: LORAZEPAM
     Indication: Anxiety
     Dosage: ON DAY 4 AND DAY 5 OF HOSPITALIZATION
     Route: 065
  4. LORAZEPAM [Interacting]
     Active Substance: LORAZEPAM
     Dosage: 3 DOSES OF LORAZEPAM 2 MG ON DAY 6
     Route: 065
  5. LORAZEPAM [Interacting]
     Active Substance: LORAZEPAM
     Dosage: ON DAY 7
     Route: 065
  6. LORAZEPAM [Interacting]
     Active Substance: LORAZEPAM
     Dosage: ON DAY 8
     Route: 065
  7. LORAZEPAM [Interacting]
     Active Substance: LORAZEPAM
     Dosage: ON DAY 9
     Route: 065
  8. LORAZEPAM [Interacting]
     Active Substance: LORAZEPAM
     Dosage: ON DAY 10
     Route: 048
  9. LORAZEPAM [Interacting]
     Active Substance: LORAZEPAM
     Dosage: DOSES BETWEEN 1 AND 7 MG/D UNTIL DAY 23
     Route: 065
  10. LORAZEPAM [Interacting]
     Active Substance: LORAZEPAM
     Indication: Drug withdrawal syndrome
     Route: 030
  11. METHADONE [Interacting]
     Active Substance: METHADONE HYDROCHLORIDE
     Indication: Drug use disorder
     Route: 048
  12. METHADONE [Interacting]
     Active Substance: METHADONE HYDROCHLORIDE
     Dosage: DAY 8
     Route: 048
  13. METHADONE [Interacting]
     Active Substance: METHADONE HYDROCHLORIDE
     Dosage: DAY 10
     Route: 048
  14. METHADONE [Interacting]
     Active Substance: METHADONE HYDROCHLORIDE
     Route: 048
  15. METHADONE [Interacting]
     Active Substance: METHADONE HYDROCHLORIDE
     Dosage: ON DAY 9
     Route: 065
  16. METHADONE [Interacting]
     Active Substance: METHADONE HYDROCHLORIDE
     Dosage: ON DAY 10
     Route: 065
  17. METHADONE [Interacting]
     Active Substance: METHADONE HYDROCHLORIDE
     Dosage: ON DAY 11
     Route: 065
  18. METHADONE [Interacting]
     Active Substance: METHADONE HYDROCHLORIDE
     Dosage: RESTARTED ON DAY 24
     Route: 065
  19. METHADONE [Interacting]
     Active Substance: METHADONE HYDROCHLORIDE
     Route: 065
  20. GABAPENTIN [Interacting]
     Active Substance: GABAPENTIN
     Indication: Pain
     Route: 048
  21. GABAPENTIN [Interacting]
     Active Substance: GABAPENTIN
     Indication: Scoliosis
     Route: 065
  22. DIVALPROEX SODIUM [Interacting]
     Active Substance: DIVALPROEX SODIUM
     Indication: Affective disorder
     Dosage: IN THE MORNING
     Route: 048
  23. DIVALPROEX SODIUM [Interacting]
     Active Substance: DIVALPROEX SODIUM
     Indication: Mania
     Dosage: AT BEDTIME
     Route: 048
  24. DIVALPROEX SODIUM [Interacting]
     Active Substance: DIVALPROEX SODIUM
     Dosage: IN THE MORNING
     Route: 048
  25. DIVALPROEX SODIUM [Interacting]
     Active Substance: DIVALPROEX SODIUM
     Dosage: AT NIGHT
     Route: 048
  26. DIVALPROEX SODIUM [Interacting]
     Active Substance: DIVALPROEX SODIUM
     Route: 065
  27. CYCLOBENZAPRINE [Interacting]
     Active Substance: CYCLOBENZAPRINE
     Indication: Pain
     Route: 048
  28. CYCLOBENZAPRINE [Interacting]
     Active Substance: CYCLOBENZAPRINE
     Indication: Scoliosis
     Dosage: RESTARTED ON DAY 10
     Route: 048
  29. CYCLOBENZAPRINE [Interacting]
     Active Substance: CYCLOBENZAPRINE
     Dosage: REINITIATED ON DAY 23
     Route: 065
  30. CYCLOBENZAPRINE [Interacting]
     Active Substance: CYCLOBENZAPRINE
     Dosage: AS NEEDED
     Route: 065
  31. FLUOXETINE [Concomitant]
     Active Substance: FLUOXETINE HYDROCHLORIDE
     Indication: Major depression
     Route: 048
  32. FLUOXETINE [Concomitant]
     Active Substance: FLUOXETINE HYDROCHLORIDE
     Dosage: DAY 5 OF HOSPITALIZATION
  33. FLUOXETINE [Concomitant]
     Active Substance: FLUOXETINE HYDROCHLORIDE
     Dosage: ON DAY 6 OF HOSPITALIZATION
  34. FLUOXETINE [Concomitant]
     Active Substance: FLUOXETINE HYDROCHLORIDE
  35. QUETIAPINE [Concomitant]
     Active Substance: QUETIAPINE
     Indication: Affective disorder
     Dosage: EXTENDED-RELEASE AT BEDTIME
     Route: 048
  36. QUETIAPINE [Concomitant]
     Active Substance: QUETIAPINE
     Dosage: 25 TO 50 MG IMMEDIATE-RELEASE 4 TIMES DAILY AS NEEDED
  37. RISPERIDONE [Concomitant]
     Active Substance: RISPERIDONE
     Indication: Affective disorder
     Route: 048
  38. DOXEPIN [Concomitant]
     Active Substance: DOXEPIN
     Indication: Major depression
     Route: 048
  39. DOXEPIN [Concomitant]
     Active Substance: DOXEPIN
     Dosage: FROM DAY 5 TO DAY 7 OF HOSPITALIZATION
     Route: 065
  40. DOXEPIN [Concomitant]
     Active Substance: DOXEPIN
     Dosage: DAY 8 TO DAY 10
     Route: 065
  41. ESTRADIOL [Concomitant]
     Active Substance: ESTRADIOL
     Indication: Endometriosis
     Route: 048
  42. NAPROXEN [Concomitant]
     Active Substance: NAPROXEN
     Indication: Pain
     Dosage: AS NEEDED
     Route: 048
  43. NAPROXEN [Concomitant]
     Active Substance: NAPROXEN
     Indication: Scoliosis
  44. ATENOLOL [Concomitant]
     Active Substance: ATENOLOL
     Indication: Hypertension
     Route: 048
  45. TIOTROPIUM [Concomitant]
     Active Substance: TIOTROPIUM
     Indication: Chronic obstructive pulmonary disease
     Route: 055
  46. FUROSEMIDE [Concomitant]
     Active Substance: FUROSEMIDE
     Indication: Oedema peripheral
     Dosage: AS NEEDED
     Route: 048
  47. ALBUTEROL [Concomitant]
     Active Substance: ALBUTEROL
     Indication: Chronic obstructive pulmonary disease
     Dosage: AS NEEDED
     Route: 055

REACTIONS (4)
  - Toxicity to various agents [Recovering/Resolving]
  - Drug interaction [Unknown]
  - Depressed level of consciousness [Recovering/Resolving]
  - Respiratory depression [Recovering/Resolving]
